FAERS Safety Report 19987822 (Version 1)
Quarter: 2021Q4

REPORT INFORMATION
  Report Type: Spontaneous
  Country: FR (occurrence: FR)
  Receive Date: 20211023
  Receipt Date: 20211023
  Transmission Date: 20220303
  Serious: Yes (Hospitalization)
  Sender: FDA-Public Use
  Company Number: None

PATIENT
  Age: 55 Year
  Sex: Female

DRUGS (2)
  1. CARBOPLATIN [Suspect]
     Active Substance: CARBOPLATIN
     Indication: Neoplasm malignant
     Dosage: 10 MG / ML, SOLUTION FOR INFUSION
     Route: 042
     Dates: start: 20210728, end: 20210728
  2. ETOPOSIDE [Suspect]
     Active Substance: ETOPOSIDE
     Indication: Neoplasm malignant
     Route: 042
     Dates: start: 20210728, end: 20210728

REACTIONS (1)
  - Evans syndrome [Recovered/Resolved]

NARRATIVE: CASE EVENT DATE: 20210817
